FAERS Safety Report 4865071-7 (Version None)
Quarter: 2005Q4

REPORT INFORMATION
  Report Type: 
  Country: None (occurrence: None)
  Receive Date: 20051223
  Receipt Date: 20051123
  Transmission Date: 20060501
  Serious: Yes (Hospitalization)
  Sender: FDA-Public Use
  Company Number: US-AMGEN-KDL159065

PATIENT
  Sex: Female

DRUGS (1)
  1. ENBREL [Suspect]
     Indication: RHEUMATOID ARTHRITIS
     Route: 058
     Dates: start: 20020801

REACTIONS (8)
  - ANORECTAL DISORDER [None]
  - CONSTIPATION [None]
  - DIZZINESS [None]
  - NAUSEA [None]
  - RENAL FAILURE [None]
  - RENAL FAILURE ACUTE [None]
  - UROSEPSIS [None]
  - VAGINAL INFECTION [None]
